FAERS Safety Report 6436171-5 (Version None)
Quarter: 2009Q4

REPORT INFORMATION
  Report Type: 
  Country: None (occurrence: None)
  Receive Date: 20091111
  Receipt Date: 20091029
  Transmission Date: 20100525
  Serious: Yes (Hospitalization)
  Sender: FDA-Public Use
  Company Number: FR-PFIZER INC-2009290183

PATIENT
  Age: 47 Year
  Sex: Male

DRUGS (7)
  1. CHAMPIX [Suspect]
     Indication: EX-TOBACCO USER
     Dosage: 2 MG, 1X/DAY
     Route: 048
     Dates: start: 20070205
  2. CHAMPIX [Suspect]
     Dosage: 1 MG, 1X/DAY
     Dates: end: 20080321
  3. SEROPRAM [Concomitant]
  4. DEDROGYL [Concomitant]
  5. EUCALCIC [Concomitant]
  6. TRIATEC [Concomitant]
  7. LESCOL [Concomitant]

REACTIONS (4)
  - DEPRESSIVE SYMPTOM [None]
  - DISTURBANCE IN ATTENTION [None]
  - FLATULENCE [None]
  - RENAL IMPAIRMENT [None]
